FAERS Safety Report 8513856-8 (Version None)
Quarter: 2012Q3

REPORT INFORMATION
  Report Type: 
  Country: None (occurrence: None)
  Receive Date: 20120705
  Receipt Date: 20120618
  Transmission Date: 20120928
  Serious: Yes (Other)
  Sender: FDA-Public Use
  Company Number: 2012SP027015

PATIENT
  Sex: Male

DRUGS (2)
  1. INTERFERON [Suspect]
     Indication: HEPATITIS C
     Dates: start: 20060224, end: 20060421
  2. RIBAVIRIN [Suspect]
     Indication: HEPATITIS C
     Dates: start: 20060224, end: 20060421

REACTIONS (2)
  - HEPATITIS C [None]
  - DISEASE RECURRENCE [None]
